FAERS Safety Report 23389946 (Version 1)
Quarter: 2024Q1

REPORT INFORMATION
  Report Type: Spontaneous
  Country: PT (occurrence: PT)
  Receive Date: 20240111
  Receipt Date: 20240111
  Transmission Date: 20240410
  Serious: Yes (Hospitalization, Other)
  Sender: FDA-Public Use
  Company Number: PT-ALKEM LABORATORIES LIMITED-PT-ALKEM-2023-17083

PATIENT
  Age: 7 Month
  Sex: Female

DRUGS (14)
  1. LEVETIRACETAM [Interacting]
     Active Substance: LEVETIRACETAM
     Indication: Epilepsy
     Dosage: 25 MILLIGRAM/KILOGRAM
     Route: 065
  2. ISONIAZID [Interacting]
     Active Substance: ISONIAZID
     Indication: Disseminated tuberculosis
     Dosage: 10 MILLIGRAM/KILOGRAM
     Route: 065
  3. ISONIAZID [Interacting]
     Active Substance: ISONIAZID
     Dosage: 10 MILLIGRAM/KILOGRAM (RECHALLENGED DOSE)
     Route: 065
  4. TOPIRAMATE [Interacting]
     Active Substance: TOPIRAMATE
     Indication: Seizure
     Dosage: 3 MILLIGRAM/KILOGRAM
     Route: 065
  5. VIGABATRIN [Interacting]
     Active Substance: VIGABATRIN
     Indication: Epilepsy
     Dosage: 50 MILLIGRAM/KILOGRAM
     Route: 065
  6. LEVOFLOXACIN [Interacting]
     Active Substance: LEVOFLOXACIN
     Indication: Disseminated tuberculosis
     Dosage: 15 MILLIGRAM/KILOGRAM
     Route: 065
  7. CLONAZEPAM [Interacting]
     Active Substance: CLONAZEPAM
     Indication: Seizure
     Dosage: 0.07 MILLIGRAM/KILOGRAM
     Route: 065
  8. RIFAMPIN [Interacting]
     Active Substance: RIFAMPIN
     Indication: Disseminated tuberculosis
     Dosage: 15 MILLIGRAM/KILOGRAM
     Route: 065
  9. RIFAMPIN [Interacting]
     Active Substance: RIFAMPIN
     Dosage: 15 MILLIGRAM/KILOGRAM (RECHALLENGED DOSE)
     Route: 065
  10. RIFAMPIN [Interacting]
     Active Substance: RIFAMPIN
     Dosage: UNK (RESTARTED DOSE)
     Route: 065
  11. ETHAMBUTOL [Interacting]
     Active Substance: ETHAMBUTOL HYDROCHLORIDE
     Indication: Disseminated tuberculosis
     Dosage: 20 MILLIGRAM/KILOGRAM
     Route: 065
  12. PYRAZINAMIDE [Interacting]
     Active Substance: PYRAZINAMIDE
     Indication: Disseminated tuberculosis
     Dosage: 20 MILLIGRAM/KILOGRAM
     Route: 065
  13. PREDNISOLONE [Concomitant]
     Active Substance: PREDNISOLONE
     Indication: Disseminated tuberculosis
     Dosage: 1 MILLIGRAM/KILOGRAM
     Route: 065
  14. PYRIDOXINE [Concomitant]
     Active Substance: PYRIDOXINE
     Indication: Disseminated tuberculosis
     Dosage: 15 MILLIGRAM/KILOGRAM
     Route: 065

REACTIONS (5)
  - Drug interaction [Unknown]
  - Change in seizure presentation [Unknown]
  - Drug-induced liver injury [Recovered/Resolved]
  - Toxicity to various agents [Unknown]
  - Magnetic resonance imaging head abnormal [Unknown]
